FAERS Safety Report 23126609 (Version 1)
Quarter: 2023Q4

REPORT INFORMATION
  Report Type: Spontaneous
  Country: IT (occurrence: IT)
  Receive Date: 20231030
  Receipt Date: 20231030
  Transmission Date: 20240110
  Serious: Yes (Other)
  Sender: FDA-Public Use
  Company Number: IT-UCBSA-2023048932

PATIENT
  Sex: Female

DRUGS (1)
  1. LEVETIRACETAM [Suspect]
     Active Substance: LEVETIRACETAM
     Indication: Idiopathic generalised epilepsy
     Dosage: MEAN INITIAL MAINTENANCE DOSE WAS 1197 MILLIGRAM
     Route: 065

REACTIONS (10)
  - Myoclonic epilepsy [Unknown]
  - Gastrointestinal disorder [Unknown]
  - Skin disorder [Unknown]
  - Blood disorder [Unknown]
  - Behaviour disorder [Unknown]
  - Somnolence [Unknown]
  - Dizziness [Unknown]
  - Tremor [Unknown]
  - Treatment failure [Unknown]
  - Off label use [Unknown]
